FAERS Safety Report 15045780 (Version 1)
Quarter: 2018Q2

REPORT INFORMATION
  Report Type: Spontaneous
  Country: GB (occurrence: GB)
  Receive Date: 20180621
  Receipt Date: 20180621
  Transmission Date: 20180711
  Serious: Yes (Other)
  Sender: FDA-Public Use
  Company Number: GB-TEVA-2018-GB-910542

PATIENT
  Age: 68 Year
  Sex: Female
  Weight: 61.68 kg

DRUGS (6)
  1. ATENOLOL. [Concomitant]
     Active Substance: ATENOLOL
  2. ATORVASTATIN [Concomitant]
     Active Substance: ATORVASTATIN
  3. ADCAL-D3 [Concomitant]
     Active Substance: CALCIUM CARBONATE\CHOLECALCIFEROL
  4. PHENOXYMETHYLPENICILLIN [Suspect]
     Active Substance: PENICILLIN V
     Indication: PHARYNGITIS
     Dosage: 2000 MILLIGRAM DAILY; 10 DAY COURSE.
     Route: 048
     Dates: start: 20180423
  5. PREDNISOLONE. [Concomitant]
     Active Substance: PREDNISOLONE
  6. LEVOTHYROXINE. [Concomitant]
     Active Substance: LEVOTHYROXINE

REACTIONS (5)
  - Diarrhoea [Not Recovered/Not Resolved]
  - Bladder pain [Not Recovered/Not Resolved]
  - Induration [Not Recovered/Not Resolved]
  - Dysuria [Not Recovered/Not Resolved]
  - Haemorrhoids [Not Recovered/Not Resolved]

NARRATIVE: CASE EVENT DATE: 20180425
